FAERS Safety Report 9343596 (Version 5)
Quarter: 2014Q2

REPORT INFORMATION
  Report Type: Report from Study
  Country: IT (occurrence: IT)
  Receive Date: 20130612
  Receipt Date: 20140602
  Transmission Date: 20141212
  Serious: Yes (Hospitalization)
  Sender: FDA-Public Use
  Company Number: IT-ROCHE-1233284

PATIENT
  Age: 67 Year
  Sex: Female
  Weight: 63 kg

DRUGS (2)
  1. VEMURAFENIB [Suspect]
     Indication: METASTATIC MALIGNANT MELANOMA
     Dosage: LAST DOSE PRIOR TO SAE: 18.MAY.2013
     Route: 048
     Dates: start: 20130509, end: 20130528
  2. COBIMETINIB [Suspect]
     Indication: METASTATIC MALIGNANT MELANOMA
     Dosage: LAST DOSE PRIOR TO SAE: 18.MAY.2013
     Route: 048
     Dates: start: 20130509, end: 20130528

REACTIONS (2)
  - Intestinal perforation [Recovered/Resolved]
  - Diverticulitis [Recovered/Resolved]
